FAERS Safety Report 9599483 (Version 1)
Quarter: 2013Q4

REPORT INFORMATION
  Report Type: Spontaneous
  Country: US (occurrence: US)
  Receive Date: 20131004
  Receipt Date: 20131004
  Transmission Date: 20140711
  Serious: No
  Sender: FDA-Public Use
  Company Number: US-AMGEN-USASP2013029289

PATIENT
  Age: 50 Year
  Sex: Male
  Weight: 88.44 kg

DRUGS (3)
  1. ENBREL [Suspect]
     Indication: PRODUCT USED FOR UNKNOWN INDICATION
     Dosage: 50 MG, 2 TIMES/WK,72-96 HOURS APART FOR 3 MONTHS
     Route: 058
  2. LISINOPRIL [Concomitant]
     Dosage: 10 MG, UNK
  3. FISH OIL [Concomitant]
     Dosage: UNK

REACTIONS (2)
  - Injection site erythema [Recovered/Resolved]
  - Injection site reaction [Recovered/Resolved]
